FAERS Safety Report 21617845 (Version 1)
Quarter: 2022Q4

REPORT INFORMATION
  Report Type: Spontaneous
  Country: US (occurrence: US)
  Receive Date: 20221119
  Receipt Date: 20221119
  Transmission Date: 20230112
  Serious: No
  Sender: FDA-Public Use
  Company Number: US-TEVA-2022-US-2822994

PATIENT
  Age: 53 Year
  Sex: Female
  Weight: 43.54 kg

DRUGS (3)
  1. AJOVY [Suspect]
     Active Substance: FREMANEZUMAB-VFRM
     Indication: Migraine
     Dosage: 225/1.5 MG/ML,MONTHLY
     Route: 065
     Dates: start: 202203
  2. ELYXYB [Concomitant]
     Active Substance: CELECOXIB
     Indication: Product used for unknown indication
  3. TIZANIDINE [Concomitant]
     Active Substance: TIZANIDINE
     Indication: Product used for unknown indication

REACTIONS (3)
  - Malabsorption from administration site [Unknown]
  - Injection site discharge [Unknown]
  - Device malfunction [Unknown]
